FAERS Safety Report 17195373 (Version 5)
Quarter: 2020Q1

REPORT INFORMATION
  Report Type: Report from Study
  Country: FR (occurrence: FR)
  Receive Date: 20191224
  Receipt Date: 20200211
  Transmission Date: 20200409
  Serious: Yes (Hospitalization)
  Sender: FDA-Public Use
  Company Number: FR-ROCHE-2495841

PATIENT
  Age: 53 Year
  Sex: Male
  Weight: 89 kg

DRUGS (12)
  1. COBIMETINIB. [Suspect]
     Active Substance: COBIMETINIB
     Indication: PLASMA CELL MYELOMA
     Dosage: ON DAYS 1-21 OF EACH 28-DAY?MOST RECENT DOSE OF COBIMETINIB PRIOR TO SAE ONSET WAS GIVEN ON 06/DEC/2
     Route: 048
     Dates: start: 20181114
  2. VENETOCLAX. [Suspect]
     Active Substance: VENETOCLAX
     Indication: PLASMA CELL MYELOMA
     Dosage: ON DAYS 1-28 OF EACH 28-DAY CYCLE?MOST RECENT DOSE OF VENETOCLAX PRIOR TO SAE AND AE ONSET WAS GIVEN
     Route: 048
     Dates: start: 20181114
  3. VALACICLOVIR [Concomitant]
     Active Substance: VALACYCLOVIR HYDROCHLORIDE
     Route: 048
     Dates: start: 20170102
  4. RACECADOTRIL [Concomitant]
     Active Substance: RACECADOTRIL
     Indication: DIARRHOEA
     Route: 048
     Dates: start: 20181121
  5. DIOSMECTITE [Concomitant]
     Active Substance: MONTMORILLONITE
     Route: 048
     Dates: start: 20181114
  6. ERYTHROMYCINE [ERYTHROMYCIN] [Concomitant]
     Active Substance: ERYTHROMYCIN
     Indication: DERMATITIS ACNEIFORM
     Route: 061
     Dates: start: 20190116
  7. CIFLOX [CIPROFLOXACIN] [Concomitant]
     Active Substance: CIPROFLOXACIN
     Indication: PROSTATE INFECTION
     Route: 048
  8. ZARZIO [Concomitant]
     Active Substance: FILGRASTIM
     Indication: NEUTROPENIA
     Route: 065
     Dates: start: 20190619
  9. ATEZOLIZUMAB. [Suspect]
     Active Substance: ATEZOLIZUMAB
     Indication: PLASMA CELL MYELOMA
     Dosage: ON DAY 1 AND DAY 15 OF EACH 28-DAY CYCLE.?ON 20/NOV/2019, HE RECEIVED LAST DOSE OF ATEZOLIZUMAB (840
     Route: 042
  10. ROCEPHINE [Concomitant]
     Active Substance: CEFTRIAXONE SODIUM
     Indication: PROSTATE INFECTION
     Route: 065
     Dates: start: 20190529
  11. ATOVAQUONE. [Concomitant]
     Active Substance: ATOVAQUONE
     Route: 048
     Dates: start: 20170102
  12. METOCLOPRAMIDE. [Concomitant]
     Active Substance: METOCLOPRAMIDE
     Indication: NAUSEA
     Route: 065
     Dates: start: 20181114

REACTIONS (1)
  - Intervertebral discitis [Not Recovered/Not Resolved]

NARRATIVE: CASE EVENT DATE: 20191206
